FAERS Safety Report 18094988 (Version 1)
Quarter: 2020Q3

REPORT INFORMATION
  Report Type: Spontaneous
  Country: US (occurrence: US)
  Receive Date: 20200731
  Receipt Date: 20200731
  Transmission Date: 20201103
  Serious: No
  Sender: FDA-Public Use
  Company Number: NVSC2020US211667

PATIENT
  Age: 60 Year
  Sex: Female

DRUGS (2)
  1. CIPRODEX [Suspect]
     Active Substance: CIPROFLOXACIN HYDROCHLORIDE\DEXAMETHASONE
     Indication: COLITIS ULCERATIVE
     Dosage: 300 MG
     Route: 042
     Dates: start: 20200514
  2. FLAGYL [Suspect]
     Active Substance: METRONIDAZOLE\METRONIDAZOLE HYDROCHLORIDE
     Indication: ANAL FISSURE
     Dosage: UNK
     Route: 065

REACTIONS (2)
  - Anal fissure [Unknown]
  - Rash pruritic [Unknown]

NARRATIVE: CASE EVENT DATE: 20200528
